FAERS Safety Report 9445119 (Version 1)
Quarter: 2013Q3

REPORT INFORMATION
  Report Type: Spontaneous
  Country: GB (occurrence: None)
  Receive Date: 20130802
  Receipt Date: 20130802
  Transmission Date: 20140515
  Serious: Yes (Other)
  Sender: FDA-Public Use
  Company Number: 2013GMK006317

PATIENT
  Age: 25 Year
  Sex: Male
  Weight: 91.3 kg

DRUGS (9)
  1. ZOLMITRIPTAN [Suspect]
     Indication: PRODUCT USED FOR UNKNOWN INDICATION
     Dosage: UNK, 06/19/2013 TO UNK
     Dates: start: 20130619
  2. AMITRIPTYLINE HYDROCHLORIDE [Concomitant]
  3. BETAMETHASONE VALERATE [Concomitant]
  4. CALCIPOTRIOL [Concomitant]
  5. CLENIL MODULITE [Concomitant]
  6. DERMOL? [Concomitant]
  7. E45 ITCH RELIEF [Concomitant]
  8. SALBUTAMOL [Concomitant]
  9. ZOLPIDEM (ZOLPIDEM) [Concomitant]

REACTIONS (1)
  - Hypoaesthesia [None]
